FAERS Safety Report 4493326-7 (Version None)
Quarter: 2004Q4

REPORT INFORMATION
  Report Type: 
  Country: None (occurrence: None)
  Receive Date: 20041102
  Receipt Date: 20041014
  Transmission Date: 20050328
  Serious: Yes (Life-Threatening, Hospitalization)
  Sender: FDA-Public Use
  Company Number: 1683

PATIENT
  Age: 44 Year
  Sex: Female

DRUGS (2)
  1. AVINZA [Suspect]
     Indication: MIGRAINE
     Dosage: 630 MG QD PO
     Route: 048
     Dates: start: 20041002, end: 20041002
  2. DIAZEPAM [Concomitant]

REACTIONS (9)
  - COMA [None]
  - FALL [None]
  - HYPOXIC ENCEPHALOPATHY [None]
  - INTENTIONAL OVERDOSE [None]
  - LOSS OF CONSCIOUSNESS [None]
  - METABOLIC ENCEPHALOPATHY [None]
  - PNEUMONIA ASPIRATION [None]
  - RESPIRATORY FAILURE [None]
  - SUICIDE ATTEMPT [None]
